FAERS Safety Report 7999745-6 (Version None)
Quarter: 2011Q4

REPORT INFORMATION
  Report Type: 
  Country: None (occurrence: None)
  Receive Date: 20111221
  Receipt Date: 20111216
  Transmission Date: 20120403
  Serious: Yes (Death)
  Sender: FDA-Public Use
  Company Number: US-ASTRAZENECA-2011SE76451

PATIENT
  Age: 49 Year
  Sex: Male

DRUGS (3)
  1. FENTANYL [Suspect]
     Route: 062
  2. LIDOCAINE [Suspect]
     Route: 062
  3. OXYCODONE HCL [Suspect]
     Route: 048

REACTIONS (1)
  - TOXICITY TO VARIOUS AGENTS [None]
